FAERS Safety Report 7116048-2 (Version None)
Quarter: 2010Q4

REPORT INFORMATION
  Report Type: 
  Country: None (occurrence: None)
  Receive Date: 20101122
  Receipt Date: 20101110
  Transmission Date: 20110411
  Serious: Yes (Death, Hospitalization)
  Sender: FDA-Public Use
  Company Number: JP-ROCHE-733314

PATIENT
  Sex: Male
  Weight: 50 kg

DRUGS (6)
  1. AVASTIN [Suspect]
     Indication: LARGE INTESTINE CARCINOMA
     Dosage: DISCONTINUED.
     Route: 041
     Dates: start: 20080718, end: 20090508
  2. ELPLAT [Suspect]
     Indication: LARGE INTESTINE CARCINOMA
     Dosage: DOSAGE UNCERTAIN.
     Route: 041
     Dates: start: 20080718, end: 20090508
  3. LEVOFOLINATE [Suspect]
     Indication: LARGE INTESTINE CARCINOMA
     Dosage: DOSAGE UNCERTAIN
     Route: 041
     Dates: start: 20080718, end: 20100508
  4. LEVOFOLINATE [Suspect]
     Dosage: DOSAGE IS UNCERTAIN.
     Route: 041
     Dates: start: 20090101, end: 20091103
  5. FLUOROURACIL [Suspect]
     Indication: LARGE INTESTINE CARCINOMA
     Dosage: DOSAGE UNCERTAIN.
     Route: 042
     Dates: start: 20080718, end: 20090501
  6. FLUOROURACIL [Suspect]
     Dosage: DOSAGE IS UNCERTAIN.
     Route: 042
     Dates: start: 20090101, end: 20091101

REACTIONS (3)
  - CEREBRAL INFARCTION [None]
  - DISEASE PROGRESSION [None]
  - POLYMYOSITIS [None]
